FAERS Safety Report 11392165 (Version 2)
Quarter: 2015Q4

REPORT INFORMATION
  Report Type: Spontaneous
  Country: US (occurrence: US)
  Receive Date: 20150818
  Receipt Date: 20151019
  Transmission Date: 20160304
  Serious: Yes (Death, Other)
  Sender: FDA-Public Use
  Company Number: US-PFIZER INC-2015271940

PATIENT
  Age: 74 Year
  Sex: Female
  Weight: 54 kg

DRUGS (3)
  1. REVATIO [Suspect]
     Active Substance: SILDENAFIL CITRATE
     Indication: PULMONARY HYPERTENSION
     Dosage: 20 MG, 3X/DAY
     Route: 048
     Dates: start: 2015
  2. OFEC [Concomitant]
     Indication: IDIOPATHIC PULMONARY FIBROSIS
     Dosage: UNK, 2X/DAY
     Dates: start: 201503
  3. OXYGEN. [Concomitant]
     Active Substance: OXYGEN
     Dosage: UNK

REACTIONS (4)
  - Dyspnoea [Unknown]
  - Abdominal discomfort [Recovered/Resolved]
  - Myocardial infarction [Fatal]
  - Hypertension [Unknown]

NARRATIVE: CASE EVENT DATE: 2015
